FAERS Safety Report 6409459-1 (Version None)
Quarter: 2009Q4

REPORT INFORMATION
  Report Type: 
  Country: None (occurrence: None)
  Receive Date: 20091019
  Receipt Date: 20091009
  Transmission Date: 20100525
  Serious: Yes (Death, Life-Threatening, Hospitalization)
  Sender: FDA-Public Use
  Company Number: CLOF-1000730

PATIENT
  Sex: Female

DRUGS (4)
  1. CLOLAR [Suspect]
     Indication: ACUTE LYMPHOCYTIC LEUKAEMIA
     Dosage: 20 MG/M2, INTRAVENOUS; 400 MG/M2, QD, INTRAVENOUS; 400 MG/M2, QD, INTRAVENOUS
     Route: 042
     Dates: start: 20090220, end: 20090221
  2. CLOLAR [Suspect]
     Indication: ACUTE LYMPHOCYTIC LEUKAEMIA
     Dosage: 20 MG/M2, INTRAVENOUS; 400 MG/M2, QD, INTRAVENOUS; 400 MG/M2, QD, INTRAVENOUS
     Route: 042
     Dates: start: 20090219, end: 20090228
  3. CLOLAR [Suspect]
     Indication: ACUTE LYMPHOCYTIC LEUKAEMIA
     Dosage: 20 MG/M2, INTRAVENOUS; 400 MG/M2, QD, INTRAVENOUS; 400 MG/M2, QD, INTRAVENOUS
     Route: 042
     Dates: start: 20090226, end: 20090228
  4. CYCLOPHOSPHAMIDE [Suspect]
     Indication: ACUTE LYMPHOCYTIC LEUKAEMIA
     Dosage: 200 MG/M2, QD, INTRAVENOUS
     Route: 042
     Dates: start: 20090218, end: 20090219

REACTIONS (7)
  - DISEASE PROGRESSION [None]
  - FEBRILE NEUTROPENIA [None]
  - FUNGAL INFECTION [None]
  - HYPOKALAEMIA [None]
  - LEUKOPENIA [None]
  - LYMPHOPENIA [None]
  - THROMBOCYTOPENIA [None]
